FAERS Safety Report 12214082 (Version 1)
Quarter: 2016Q1

REPORT INFORMATION
  Report Type: Spontaneous
  Country: US (occurrence: US)
  Receive Date: 20160328
  Receipt Date: 20160328
  Transmission Date: 20160526
  Serious: No
  Sender: FDA-Public Use
  Company Number: US-BAUSCH-BL-2016-001333

PATIENT
  Age: 23 Year
  Sex: Male
  Weight: 68.1 kg

DRUGS (1)
  1. TRETINOIN. [Suspect]
     Active Substance: TRETINOIN
     Indication: ACNE
     Dosage: APPLY TO AFFECTED AREAS ON FACE ONCE DAILY AT BEDTIME.
     Route: 061
     Dates: start: 20151222, end: 20151225

REACTIONS (2)
  - Erythema [Recovering/Resolving]
  - Acne [Recovering/Resolving]

NARRATIVE: CASE EVENT DATE: 20151224
